FAERS Safety Report 8594528-0 (Version None)
Quarter: 2012Q3

REPORT INFORMATION
  Report Type: 
  Country: None (occurrence: None)
  Receive Date: 20120815
  Receipt Date: 20120807
  Transmission Date: 20120928
  Serious: Yes (Hospitalization)
  Sender: FDA-Public Use
  Company Number: US-BAYER-2012-081378

PATIENT
  Age: 19 Year
  Sex: Female

DRUGS (5)
  1. YAZ [Suspect]
     Indication: ACNE
  2. NOVOLOG [Concomitant]
     Indication: DIABETES MELLITUS
  3. BENZACLIN [Concomitant]
     Indication: ACNE
     Route: 061
  4. RETIN-A [Concomitant]
     Indication: ACNE
     Route: 061
  5. PREVIDENT BOOSTER [Concomitant]
     Dosage: DAYS SUPPLY-15

REACTIONS (1)
  - PULMONARY EMBOLISM [None]
